FAERS Safety Report 13718777 (Version 1)
Quarter: 2017Q3

REPORT INFORMATION
  Report Type: Spontaneous
  Country: US (occurrence: US)
  Receive Date: 20170705
  Receipt Date: 20170705
  Transmission Date: 20171127
  Serious: Yes (Hospitalization)
  Sender: FDA-Public Use
  Company Number: US-FRESENIUS KABI-FK201705744

PATIENT
  Age: 61 Year
  Sex: Female
  Weight: 69 kg

DRUGS (4)
  1. INCB039110 [Suspect]
     Active Substance: INVESTIGATIONAL PRODUCT
     Indication: ENDOMETRIAL CANCER
     Route: 065
     Dates: start: 20161205
  2. INCB050465 [Suspect]
     Active Substance: INVESTIGATIONAL PRODUCT
     Indication: ENDOMETRIAL CANCER
     Route: 065
     Dates: start: 20161205
  3. CARBOPLATIN (MANUFACTURER UNKNOWN) [Suspect]
     Active Substance: CARBOPLATIN
     Indication: ENDOMETRIAL CANCER
     Route: 042
     Dates: start: 20170425, end: 20170425
  4. TAXOL [Suspect]
     Active Substance: PACLITAXEL
     Indication: ENDOMETRIAL CANCER
     Route: 042
     Dates: start: 20170425, end: 20170425

REACTIONS (3)
  - Nausea [Recovered/Resolved]
  - Vomiting [Recovered/Resolved]
  - Dehydration [Recovered/Resolved]

NARRATIVE: CASE EVENT DATE: 20170429
